FAERS Safety Report 14996549 (Version 6)
Quarter: 2018Q3

REPORT INFORMATION
  Report Type: Spontaneous
  Country: CA (occurrence: CA)
  Receive Date: 20180611
  Receipt Date: 20180911
  Transmission Date: 20181010
  Serious: Yes (Hospitalization, Other)
  Sender: FDA-Public Use
  Company Number: CA-CELLTRION INC.-2018CA020505

PATIENT

DRUGS (45)
  1. CELEBREX [Concomitant]
     Active Substance: CELECOXIB
     Indication: PAIN
  2. PREDNISONE. [Concomitant]
     Active Substance: PREDNISONE
  3. RISEDRONATE [Concomitant]
     Active Substance: RISEDRONATE SODIUM
  4. PANTOPRAZOLE [Concomitant]
     Active Substance: PANTOPRAZOLE
  5. ATORVASTATIN [Concomitant]
     Active Substance: ATORVASTATIN
  6. OXAZEPAM. [Concomitant]
     Active Substance: OXAZEPAM
  7. OCUVITE [Concomitant]
     Active Substance: VITAMINS
  8. CIPROFLOXACIN. [Concomitant]
     Active Substance: CIPROFLOXACIN
  9. NITRO                              /00003201/ [Concomitant]
     Active Substance: NITROGLYCERIN
  10. INFLECTRA [Suspect]
     Active Substance: INFLIXIMAB-DYYB
     Dosage: 5 MG/KG, CYCLIC (EVERY 0, 2,6 THEN EVERY 8 WEEKS)
     Route: 042
     Dates: start: 20180611, end: 20180611
  11. CELEBREX [Concomitant]
     Active Substance: CELECOXIB
     Indication: SWELLING
     Dosage: 200 MG, BID, FOR 10 DAYS
  12. DICYCLOMINE                        /00068601/ [Concomitant]
     Active Substance: DICYCLOMINE HYDROCHLORIDE
  13. METAMUCIL [Concomitant]
     Active Substance: PLANTAGO SEED
  14. INFLECTRA [Suspect]
     Active Substance: INFLIXIMAB-DYYB
     Indication: COLITIS ULCERATIVE
     Dosage: 5 MG/KG, CYCLIC (EVERY 0, 2,6 THEN EVERY 8 WEEKS)
     Route: 042
     Dates: start: 20180518
  15. VOLTAREN [Concomitant]
     Active Substance: DICLOFENAC SODIUM
  16. SALBUTAMOL HFA [Concomitant]
     Active Substance: ALBUTEROL
  17. LACTIBIANE [Concomitant]
  18. TUDORZA GENUAIR [Concomitant]
     Active Substance: ACLIDINIUM BROMIDE
  19. ASPIRIN 81 [Concomitant]
     Active Substance: ASPIRIN
  20. DILTIAZEM T [Concomitant]
  21. BISACODYL. [Concomitant]
     Active Substance: BISACODYL
  22. CLOTRIMADERM [Concomitant]
  23. ADVAIR HFA [Concomitant]
     Active Substance: FLUTICASONE PROPIONATE\SALMETEROL XINAFOATE
  24. CEFPROZIL. [Concomitant]
     Active Substance: CEFPROZIL
  25. TOMA [Concomitant]
  26. CLARITHROMYCIN. [Concomitant]
     Active Substance: CLARITHROMYCIN
  27. EMCORT [Concomitant]
  28. INFLECTRA [Suspect]
     Active Substance: INFLIXIMAB-DYYB
     Dosage: 5 MG/KG, CYCLIC (EVERY 0, 2,6 THEN EVERY 8 WEEKS)
     Route: 042
     Dates: start: 20180710
  29. SPIRONOLACTONE. [Concomitant]
     Active Substance: SPIRONOLACTONE
     Dosage: 25 MG, DAILY
     Route: 048
  30. CALCIUM + VITAMIN D                /00944201/ [Concomitant]
     Active Substance: CALCIUM CARBONATE\CHOLECALCIFEROL
  31. MOMETASONE [Concomitant]
     Active Substance: MOMETASONE
  32. NASONEX [Concomitant]
     Active Substance: MOMETASONE FUROATE
  33. PYRIDIUM [Concomitant]
     Active Substance: PHENAZOPYRIDINE
  34. AVELOX [Concomitant]
     Active Substance: MOXIFLOXACIN HYDROCHLORIDE
  35. SYMBICORT [Concomitant]
     Active Substance: BUDESONIDE\FORMOTEROL FUMARATE DIHYDRATE
  36. COLYTE                             /00751601/ [Concomitant]
  37. LEVOFLOXACIN. [Concomitant]
     Active Substance: LEVOFLOXACIN
  38. FLOVENT HFA [Concomitant]
     Active Substance: FLUTICASONE PROPIONATE
  39. ALVESCO [Concomitant]
     Active Substance: CICLESONIDE
  40. CIPRO XL [Concomitant]
     Active Substance: CIPROFLOXACIN\CIPROFLOXACIN HYDROCHLORIDE
  41. PRESERVISION AREDS 2 [Concomitant]
     Active Substance: MINERALS\VITAMINS
  42. AVAMYS [Concomitant]
     Active Substance: FLUTICASONE FUROATE
  43. PROBACLAC [Concomitant]
  44. MOXIFLOXACIN. [Concomitant]
     Active Substance: MOXIFLOXACIN
  45. AMOXI?CLAV [Concomitant]
     Active Substance: AMOXICILLIN\CLAVULANATE POTASSIUM

REACTIONS (11)
  - Aphonia [Not Recovered/Not Resolved]
  - Muscle spasms [Not Recovered/Not Resolved]
  - Blood pressure decreased [Unknown]
  - Pain in extremity [Not Recovered/Not Resolved]
  - Feeling abnormal [Not Recovered/Not Resolved]
  - Vomiting [Unknown]
  - Musculoskeletal chest pain [Not Recovered/Not Resolved]
  - Ageusia [Not Recovered/Not Resolved]
  - Sinusitis [Not Recovered/Not Resolved]
  - Pneumonia [Recovered/Resolved]
  - Dizziness [Unknown]

NARRATIVE: CASE EVENT DATE: 201805
